FAERS Safety Report 5636945-4 (Version None)
Quarter: 2008Q1

REPORT INFORMATION
  Report Type: 
  Country: None (occurrence: None)
  Receive Date: 20080225
  Receipt Date: 20070122
  Transmission Date: 20080703
  Serious: No
  Sender: FDA-Public Use
  Company Number: US-BRISTOL-MYERS SQUIBB COMPANY-13651567

PATIENT
  Age: 65 Year
  Sex: Female
  Weight: 112 kg

DRUGS (9)
  1. GLUCOPHAGE [Suspect]
  2. BYETTA [Suspect]
     Indication: TYPE 2 DIABETES MELLITUS
     Route: 058
     Dates: start: 20061224
  3. HUMULIN 70/30 [Concomitant]
     Dates: end: 20061224
  4. HUMULIN L [Concomitant]
  5. HUMULIN N [Concomitant]
  6. ACTOS [Concomitant]
  7. QUINAPRIL HCL [Concomitant]
  8. AMARYL [Concomitant]
  9. IMODIUM [Concomitant]

REACTIONS (4)
  - ABDOMINAL PAIN [None]
  - BLOOD GLUCOSE INCREASED [None]
  - DIARRHOEA [None]
  - DRUG INEFFECTIVE [None]
